FAERS Safety Report 15319507 (Version 1)
Quarter: 2018Q3

REPORT INFORMATION
  Report Type: Spontaneous
  Country: FR (occurrence: FR)
  Receive Date: 20180827
  Receipt Date: 20180827
  Transmission Date: 20181010
  Serious: Yes (Hospitalization)
  Sender: FDA-Public Use
  Company Number: FR-TEVA-2018-FR-947197

PATIENT
  Age: 79 Year
  Sex: Male

DRUGS (2)
  1. OFLOXACIN. [Suspect]
     Active Substance: OFLOXACIN
     Indication: ENDOCARDITIS
     Dosage: NO INFORMATION
     Route: 048
     Dates: start: 20180711, end: 20180716
  2. RIFAMPICINE [Concomitant]
     Active Substance: RIFAMPIN
     Indication: ARTHRITIS BACTERIAL
     Route: 048
     Dates: start: 20180705, end: 20180719

REACTIONS (1)
  - Rash maculo-papular [Recovered/Resolved]

NARRATIVE: CASE EVENT DATE: 20180718
